FAERS Safety Report 7498331-4 (Version None)
Quarter: 2011Q2

REPORT INFORMATION
  Report Type: 
  Country: None (occurrence: None)
  Receive Date: 20110524
  Receipt Date: 20081122
  Transmission Date: 20111010
  Serious: Yes (Death, Hospitalization, Other)
  Sender: FDA-Public Use
  Company Number: US-BAYER-200839324NA

PATIENT
  Age: 80 Year
  Sex: Male
  Weight: 79.37 kg

DRUGS (31)
  1. TRASYLOL [Suspect]
     Indication: MITRAL VALVE REPLACEMENT
     Dosage: 1 ML/HR
     Route: 042
  2. NITROGLYCERIN [Concomitant]
     Dosage: UNK
     Route: 042
     Dates: start: 20040226
  3. VERSED [Concomitant]
     Dosage: 5 MG, UNK
     Route: 042
     Dates: start: 20040226
  4. FENTANYL [Concomitant]
     Dosage: UNK
     Route: 042
     Dates: start: 20040226
  5. CALCIUM CHLORIDE [Concomitant]
     Dosage: UNK
     Route: 042
     Dates: start: 20040226
  6. PHENYLEPHRINE HCL [Concomitant]
     Dosage: UNK
     Route: 042
     Dates: start: 20040226
  7. PAPAVERINE [Concomitant]
     Dosage: UNK
     Route: 042
     Dates: start: 20040226
  8. MAGNESIUM SULFATE [Concomitant]
     Dosage: UNK
     Route: 042
     Dates: start: 20040226
  9. SODIUM BICARBONATE [Concomitant]
     Dosage: UNK
     Route: 042
     Dates: start: 20040226
  10. ATIVAN [Concomitant]
     Dosage: 2 MG, UNK
     Route: 042
     Dates: start: 20040226
  11. PROTAMINE SULFATE [Concomitant]
     Dosage: UNK
     Route: 042
     Dates: start: 20040226
  12. SUCCINYLCHOLINE CHLORIDE [Concomitant]
     Dosage: 120
     Route: 042
     Dates: start: 20040226
  13. LIDOCAINE [Concomitant]
     Dosage: UNK
     Route: 042
     Dates: start: 20040226
  14. TRASYLOL [Suspect]
     Indication: CORONARY ARTERY BYPASS
     Dosage: 200 ML/HR
     Route: 042
     Dates: start: 20040226, end: 20040228
  15. ATENOLOL [Concomitant]
     Dosage: 50 MG, QD
     Route: 048
     Dates: start: 20010222, end: 20040216
  16. SIMVASTATIN [Concomitant]
     Dosage: 20 MG, UNK
     Route: 048
  17. BACTROBAN [Concomitant]
     Dosage: UNK
     Route: 061
     Dates: start: 20040226
  18. CARDIOPLEGIA [Concomitant]
     Dosage: UNK
     Route: 042
     Dates: start: 20040226
  19. ACETAMINOPHEN [Concomitant]
     Dosage: 650 MG, UNK
     Route: 048
  20. ROCURONIUM BROMIDE [Concomitant]
     Dosage: UNK
     Route: 042
     Dates: start: 20040226
  21. LISINOPRIL [Concomitant]
     Dosage: 10 MG, QD
     Route: 048
     Dates: start: 20030731, end: 20040216
  22. LOPRESSOR [Concomitant]
     Dosage: 25 MG, BID
     Route: 048
  23. CEFAZOLIN SODIUM [Concomitant]
     Dosage: 1000 MG, UNK
     Route: 042
  24. EPINEPHRINE [Concomitant]
     Dosage: UNK
     Route: 042
     Dates: start: 20040226
  25. NOREPINEPHRINE BITARTRATE [Concomitant]
     Dosage: UNK
     Route: 042
     Dates: start: 20040226
  26. CEFAZOLIN [Concomitant]
     Dosage: UNK
     Route: 042
     Dates: start: 20040226
  27. CISATRACURIUM BESYLATE [Concomitant]
     Dosage: UNK
     Route: 042
     Dates: start: 20040226
  28. NORMOSOL [Concomitant]
     Dosage: UNK
     Route: 042
     Dates: start: 20040226
  29. PANCURONIUM BROMIDE [Concomitant]
     Dosage: UNK
     Route: 042
     Dates: start: 20040226
  30. DOPAMINE HCL [Concomitant]
     Dosage: UNK
     Route: 042
     Dates: start: 20040226
  31. POLYMYXIN [Concomitant]
     Dosage: UNK
     Route: 042
     Dates: start: 20040226

REACTIONS (11)
  - STRESS [None]
  - ANXIETY [None]
  - RENAL INJURY [None]
  - FEAR [None]
  - MULTI-ORGAN FAILURE [None]
  - RENAL FAILURE [None]
  - EMOTIONAL DISTRESS [None]
  - DEATH [None]
  - UNEVALUABLE EVENT [None]
  - PAIN [None]
  - RENAL IMPAIRMENT [None]
